FAERS Safety Report 7723818-6 (Version None)
Quarter: 2011Q3

REPORT INFORMATION
  Report Type: 
  Country: None (occurrence: None)
  Receive Date: 20110829
  Receipt Date: 20110819
  Transmission Date: 20111222
  Serious: Yes (Hospitalization)
  Sender: FDA-Public Use
  Company Number: 1000023064

PATIENT
  Age: 78 Year
  Sex: Male
  Weight: 78.92 kg

DRUGS (1)
  1. DALIRESP [Suspect]
     Indication: CHRONIC OBSTRUCTIVE PULMONARY DISEASE
     Dosage: 500 MCG (500 MCG, 1 IN 1 D), ORAL
     Route: 048
     Dates: start: 20110809, end: 20110813

REACTIONS (6)
  - MUSCULAR WEAKNESS [None]
  - AGITATION [None]
  - HYPERTHYROIDISM [None]
  - BLOOD POTASSIUM DECREASED [None]
  - MALAISE [None]
  - FATIGUE [None]
